FAERS Safety Report 6979669-3 (Version None)
Quarter: 2010Q3

REPORT INFORMATION
  Report Type: 
  Country: None (occurrence: None)
  Receive Date: 20100908
  Receipt Date: 20100824
  Transmission Date: 20110219
  Serious: Yes (Other)
  Sender: FDA-Public Use
  Company Number: KV201000281

PATIENT
  Age: 78 Year
  Sex: Female

DRUGS (2)
  1. PREDNISOLONE [Suspect]
     Indication: T-CELL LYMPHOMA
     Dosage: 20 MG, QD, ORAL
     Route: 048
  2. ETRETINATE (ETRETINATE) [Suspect]
     Indication: T-CELL LYMPHOMA
     Dosage: 30-40 MG QD, ORAL
     Route: 048

REACTIONS (2)
  - PNEUMONIA [None]
  - SYSTEMIC CANDIDA [None]
